FAERS Safety Report 6602675-5 (Version None)
Quarter: 2010Q1

REPORT INFORMATION
  Report Type: 
  Country: None (occurrence: None)
  Receive Date: 20100218
  Receipt Date: 20100208
  Transmission Date: 20100710
  Serious: Yes (Other)
  Sender: FDA-Public Use
  Company Number: JPI-P-009693

PATIENT
  Age: 18 Year
  Sex: Female

DRUGS (4)
  1. XYREM [Suspect]
     Indication: CATAPLEXY
     Dosage: 4.5 GM (2.25 GM,2 IN 1 D),ORAL; 6.5 GM (3.25 GM,2 IN 1 D),  ORAL
     Route: 048
     Dates: start: 20091230, end: 20100131
  2. XYREM [Suspect]
     Indication: CATAPLEXY
     Dosage: 4.5 GM (2.25 GM,2 IN 1 D),ORAL; 6.5 GM (3.25 GM,2 IN 1 D),  ORAL
     Route: 048
     Dates: start: 20090507
  3. XYREM [Suspect]
     Indication: CATAPLEXY
     Dosage: 4.5 GM (2.25 GM,2 IN 1 D),ORAL; 6.5 GM (3.25 GM,2 IN 1 D),  ORAL
     Route: 048
     Dates: start: 20100207
  4. FLUOXETINE [Suspect]
     Indication: DRUG USE FOR UNKNOWN INDICATION

REACTIONS (8)
  - CONFUSIONAL STATE [None]
  - FEELING COLD [None]
  - INCORRECT DOSE ADMINISTERED [None]
  - MEMORY IMPAIRMENT [None]
  - PALLOR [None]
  - POSTURE ABNORMAL [None]
  - RESPIRATION ABNORMAL [None]
  - UNRESPONSIVE TO STIMULI [None]
